FAERS Safety Report 5874182-9 (Version None)
Quarter: 2008Q3

REPORT INFORMATION
  Report Type: 
  Country: None (occurrence: None)
  Receive Date: 20080908
  Receipt Date: 20080902
  Transmission Date: 20090109
  Serious: Yes (Hospitalization)
  Sender: FDA-Public Use
  Company Number: US-ASTRAZENECA-2008UW18088

PATIENT
  Age: 66 Year
  Sex: Female
  Weight: 70.3 kg

DRUGS (6)
  1. ARIMIDEX [Suspect]
     Indication: BREAST CANCER FEMALE
     Route: 048
     Dates: start: 20070601
  2. CALCITRIOL [Concomitant]
  3. SODIUM BICARB [Concomitant]
  4. METOPROLOL TARTRATE [Concomitant]
  5. GLUCOSIDE [Concomitant]
  6. INSULIN [Concomitant]

REACTIONS (1)
  - BLOOD GLUCOSE INCREASED [None]
